FAERS Safety Report 12408415 (Version 1)
Quarter: 2016Q2

REPORT INFORMATION
  Report Type: Spontaneous
  Country: DK (occurrence: DK)
  Receive Date: 20160526
  Receipt Date: 20160526
  Transmission Date: 20160815
  Serious: Yes (Death, Hospitalization, Other)
  Sender: FDA-Public Use
  Company Number: DK-BAXTER-2016BAX026693

PATIENT
  Age: 69 Year
  Sex: Male

DRUGS (20)
  1. MABTHERA [Suspect]
     Active Substance: RITUXIMAB
     Route: 065
     Dates: start: 20121123
  2. SENDOXAN [Suspect]
     Active Substance: CYCLOPHOSPHAMIDE
     Dosage: R-CHOP CHEMOTHERAPY
     Route: 065
     Dates: start: 20130108, end: 20130125
  3. MABTHERA [Suspect]
     Active Substance: RITUXIMAB
     Route: 065
     Dates: start: 20121102
  4. ONCOVIN [Suspect]
     Active Substance: VINCRISTINE SULFATE
     Indication: B-CELL LYMPHOMA
     Dosage: R-CHOP CHEMOTHERAPY
     Route: 065
     Dates: start: 20121012
  5. ONCOVIN [Suspect]
     Active Substance: VINCRISTINE SULFATE
     Dosage: R-CHOP CHEMOTHERAPY
     Route: 065
     Dates: start: 20121214
  6. SENDOXAN [Suspect]
     Active Substance: CYCLOPHOSPHAMIDE
     Dosage: R-CHOP CHEMOTHERAPY
     Route: 065
     Dates: start: 20121102
  7. SENDOXAN [Suspect]
     Active Substance: CYCLOPHOSPHAMIDE
     Dosage: R-CHOP CHEMOTHERAPY
     Route: 065
     Dates: start: 20121123
  8. ONCOVIN [Suspect]
     Active Substance: VINCRISTINE SULFATE
     Dosage: R-CHOP CHEMOTHERAPY
     Route: 065
     Dates: start: 20130108, end: 20130125
  9. MABTHERA [Suspect]
     Active Substance: RITUXIMAB
     Indication: B-CELL LYMPHOMA
     Route: 065
     Dates: start: 20121012
  10. MABTHERA [Suspect]
     Active Substance: RITUXIMAB
     Route: 065
     Dates: start: 20130108, end: 20130429
  11. SENDOXAN [Suspect]
     Active Substance: CYCLOPHOSPHAMIDE
     Indication: B-CELL LYMPHOMA
     Dosage: R-CHOP CHEMOTHERAPY
     Route: 065
     Dates: start: 20121012
  12. SENDOXAN [Suspect]
     Active Substance: CYCLOPHOSPHAMIDE
     Dosage: R-CHOP CHEMOTHERAPY
     Route: 065
     Dates: start: 20121214
  13. ADRIAMYCIN [Suspect]
     Active Substance: DOXORUBICIN HYDROCHLORIDE
     Dosage: R-CHOP CHEMOTHERAPY
     Route: 065
     Dates: start: 20121214
  14. ADRIAMYCIN [Suspect]
     Active Substance: DOXORUBICIN HYDROCHLORIDE
     Dosage: R-CHOP CHEMOTHERAPY
     Route: 065
     Dates: start: 20130108, end: 20130125
  15. ONCOVIN [Suspect]
     Active Substance: VINCRISTINE SULFATE
     Dosage: R-CHOP CHEMOTHERAPY
     Route: 065
     Dates: start: 20121102
  16. ONCOVIN [Suspect]
     Active Substance: VINCRISTINE SULFATE
     Dosage: R-CHOP CHEMOTHERAPY
     Route: 065
     Dates: start: 20121123
  17. ADRIAMYCIN [Suspect]
     Active Substance: DOXORUBICIN HYDROCHLORIDE
     Dosage: R-CHOP CHEMOTHERAPY
     Route: 065
     Dates: start: 20121123
  18. MABTHERA [Suspect]
     Active Substance: RITUXIMAB
     Route: 065
     Dates: start: 20121214
  19. ADRIAMYCIN [Suspect]
     Active Substance: DOXORUBICIN HYDROCHLORIDE
     Indication: B-CELL LYMPHOMA
     Dosage: R-CHOP CHEMOTHERAPY
     Route: 065
     Dates: start: 20121012
  20. ADRIAMYCIN [Suspect]
     Active Substance: DOXORUBICIN HYDROCHLORIDE
     Dosage: R-CHOP CHEMOTHERAPY
     Route: 065
     Dates: start: 20121102

REACTIONS (7)
  - Cardiomegaly [Fatal]
  - Ascites [Unknown]
  - Malignant peritoneal neoplasm [Unknown]
  - Pneumonia [Recovered/Resolved]
  - Pleural effusion [Unknown]
  - Cardiac failure [Fatal]
  - Hallucination [Unknown]

NARRATIVE: CASE EVENT DATE: 20130203
